FAERS Safety Report 17960356 (Version 1)
Quarter: 2020Q2

REPORT INFORMATION
  Report Type: Report from Study
  Country: None (occurrence: US)
  Receive Date: 20200630
  Receipt Date: 20200630
  Transmission Date: 20200714
  Serious: No
  Sender: FDA-Public Use
  Company Number: US-BIOVITRUM-2019US1790

PATIENT
  Sex: Female

DRUGS (1)
  1. KINERET [Suspect]
     Active Substance: ANAKINRA
     Indication: POLYMYALGIA RHEUMATICA
     Route: 058
     Dates: start: 20190329

REACTIONS (9)
  - Pain in extremity [Unknown]
  - Injection site erythema [Unknown]
  - Arthralgia [Unknown]
  - Injection site pruritus [Not Recovered/Not Resolved]
  - Fat tissue decreased [Unknown]
  - Injection site induration [Unknown]
  - Off label use [Unknown]
  - Injection site swelling [Unknown]
  - Injection site discomfort [Unknown]
